FAERS Safety Report 4630128-2 (Version None)
Quarter: 2005Q2

REPORT INFORMATION
  Report Type: 
  Country: None (occurrence: None)
  Receive Date: 20050408
  Receipt Date: 20050323
  Transmission Date: 20051028
  Serious: Yes (Other)
  Sender: FDA-Public Use
  Company Number: AU-GLAXOSMITHKLINE-B0376281A

PATIENT
  Age: 41 Year
  Sex: Male
  Weight: 91.5 kg

DRUGS (1)
  1. AUGMENTIN '125' [Suspect]
     Indication: ILL-DEFINED DISORDER
     Route: 048

REACTIONS (3)
  - CIRCULATORY COLLAPSE [None]
  - CONVULSION [None]
  - ILL-DEFINED DISORDER [None]
